FAERS Safety Report 16208276 (Version 1)
Quarter: 2019Q2

REPORT INFORMATION
  Report Type: Spontaneous
  Country: US (occurrence: US)
  Receive Date: 20190417
  Receipt Date: 20190417
  Transmission Date: 20190711
  Serious: Yes (Other)
  Sender: FDA-Public Use
  Company Number: US-AKORN PHARMACEUTICALS-2019AKN00640

PATIENT
  Age: 53 Year
  Sex: Female
  Weight: 86.17 kg

DRUGS (3)
  1. MYORISAN [Suspect]
     Active Substance: ISOTRETINOIN
     Dosage: 40 MG, 1X/DAY
     Dates: start: 201902, end: 201903
  2. MYORISAN [Suspect]
     Active Substance: ISOTRETINOIN
     Dosage: 80 MG, 1X/DAY; ^TOTAL A DAY^
     Dates: start: 201901, end: 201902
  3. MYORISAN [Suspect]
     Active Substance: ISOTRETINOIN
     Indication: ACNE
     Dosage: 120 MG, 1X/DAY; ^TOTAL A DAY^
     Dates: start: 20181218

REACTIONS (7)
  - Arthralgia [Unknown]
  - Unevaluable event [Unknown]
  - Off label use [Recovered/Resolved]
  - Depressed mood [Unknown]
  - Swelling face [Unknown]
  - Vision blurred [Unknown]
  - Headache [Unknown]

NARRATIVE: CASE EVENT DATE: 201902
